FAERS Safety Report 4615104-8 (Version None)
Quarter: 2005Q1

REPORT INFORMATION
  Report Type: 
  Country: None (occurrence: None)
  Receive Date: 20050315
  Receipt Date: 20010621
  Transmission Date: 20050727
  Serious: Yes (Other)
  Sender: FDA-Public Use
  Company Number: US014860

PATIENT
  Sex: Male

DRUGS (1)
  1. VIGIL [Suspect]
     Indication: NARCOLEPSY
     Dosage: 100 MG QD ORAL
     Route: 048
     Dates: start: 19990801

REACTIONS (1)
  - RAYNAUD'S PHENOMENON [None]
